FAERS Safety Report 5665519-4 (Version None)
Quarter: 2008Q1

REPORT INFORMATION
  Report Type: 
  Country: None (occurrence: None)
  Receive Date: 20080314
  Receipt Date: 20071207
  Transmission Date: 20080703
  Serious: No
  Sender: FDA-Public Use
  Company Number: US-ABBOTT-07P-163-0428206-00

PATIENT
  Sex: Female
  Weight: 68.1 kg

DRUGS (2)
  1. HUMIRA [Suspect]
     Indication: ARTHRITIS REACTIVE
     Route: 058
     Dates: start: 20060801, end: 20061201
  2. HUMIRA [Suspect]
     Dates: start: 20061201, end: 20070201

REACTIONS (4)
  - ACID FAST STAIN POSITIVE [None]
  - COUGH [None]
  - DRUG INEFFECTIVE [None]
  - MYCOBACTERIUM AVIUM COMPLEX INFECTION [None]
